FAERS Safety Report 22951811 (Version 3)
Quarter: 2023Q4

REPORT INFORMATION
  Report Type: Spontaneous
  Country: US (occurrence: US)
  Receive Date: 20230918
  Receipt Date: 20231120
  Transmission Date: 20240110
  Serious: Yes (Hospitalization, Other)
  Sender: FDA-Public Use
  Company Number: US-BRISTOL-MYERS SQUIBB COMPANY-2023-129565

PATIENT
  Age: 69 Year
  Sex: Female

DRUGS (1)
  1. LENALIDOMIDE [Suspect]
     Active Substance: LENALIDOMIDE
     Indication: Plasma cell myeloma
     Dosage: TAKE 1 CAPSULE WHOLE BY MOUTH WITH WATER EVERY DAY ON DAYS 1-21 EVERY 28 DAY CYCLE. DO NOT BREAK, CH
     Route: 048
     Dates: start: 20221031

REACTIONS (7)
  - Hernia [Recovered/Resolved]
  - Haematoma [Recovered/Resolved]
  - Hyperglycaemia [Recovering/Resolving]
  - Appendix disorder [Recovered/Resolved]
  - Urinary tract infection [Recovering/Resolving]
  - Fatigue [Recovered/Resolved]
  - Muscle fatigue [Recovered/Resolved]
